FAERS Safety Report 14146875 (Version 1)
Quarter: 2017Q4

REPORT INFORMATION
  Report Type: Spontaneous
  Country: US (occurrence: US)
  Receive Date: 20171031
  Receipt Date: 20171031
  Transmission Date: 20180321
  Serious: No
  Sender: FDA-Public Use
  Company Number: US-TAKEDA-2017TJP022338

PATIENT
  Sex: Female

DRUGS (5)
  1. LANTUS [Suspect]
     Active Substance: INSULIN GLARGINE
     Indication: DIABETES MELLITUS
     Dosage: 30 UNITS, UNK
     Route: 065
  2. TRULICITY [Suspect]
     Active Substance: DULAGLUTIDE
     Indication: DIABETES MELLITUS
     Dosage: 0.75 MG, UNK
     Route: 065
  3. METFORMIN [Suspect]
     Active Substance: METFORMIN HYDROCHLORIDE
     Indication: PRODUCT USED FOR UNKNOWN INDICATION
     Dosage: UNK
     Route: 065
  4. TRULICITY [Suspect]
     Active Substance: DULAGLUTIDE
     Dosage: 1.5 MG, UNK
     Route: 065
  5. ACTOS [Suspect]
     Active Substance: PIOGLITAZONE HYDROCHLORIDE
     Indication: PRODUCT USED FOR UNKNOWN INDICATION
     Dosage: UNK
     Route: 065

REACTIONS (18)
  - Limb mass [Unknown]
  - Mood swings [Unknown]
  - Injection site haemorrhage [Recovered/Resolved]
  - Feeling abnormal [Unknown]
  - Anxiety [Unknown]
  - Pain in extremity [Not Recovered/Not Resolved]
  - Mood altered [Unknown]
  - Ill-defined disorder [Unknown]
  - Hypersensitivity [Unknown]
  - Irritability [Unknown]
  - Dysgeusia [Recovered/Resolved]
  - Pain in extremity [Unknown]
  - Restless legs syndrome [Unknown]
  - Muscle spasms [Unknown]
  - Decreased appetite [Unknown]
  - Discomfort [Unknown]
  - Blood cholesterol increased [Recovering/Resolving]
  - Blood glucose decreased [Unknown]
